FAERS Safety Report 7830034-6 (Version None)
Quarter: 2011Q4

REPORT INFORMATION
  Report Type: 
  Country: None (occurrence: None)
  Receive Date: 20111021
  Receipt Date: 20111017
  Transmission Date: 20120403
  Serious: Yes (Life-Threatening)
  Sender: FDA-Public Use
  Company Number: AU-PURDUE-USA-2011-0076234

PATIENT
  Sex: Female

DRUGS (6)
  1. CITALOPRAM HYDROBROMIDE [Suspect]
     Indication: DEPRESSION
     Dosage: 20 MG, UNK
     Route: 048
     Dates: start: 20110209
  2. COLOXYL WITH SENNA [Concomitant]
     Indication: PRODUCT USED FOR UNKNOWN INDICATION
     Dosage: UNK
  3. ESOMEPRAZOLE SODIUM [Concomitant]
     Dosage: UNK
     Dates: start: 20110303
  4. TEMAZEPAM [Concomitant]
     Indication: PRODUCT USED FOR UNKNOWN INDICATION
     Dosage: UNK
  5. OXYCONTIN [Suspect]
     Indication: ANALGESIC THERAPY
     Dosage: 100 MG, UNK
     Route: 048
     Dates: start: 20101201, end: 20110303
  6. ESOMEPRAZOLE SODIUM [Concomitant]
     Indication: PRODUCT USED FOR UNKNOWN INDICATION
     Dosage: UNK
     Dates: end: 20110303

REACTIONS (3)
  - TREMOR [None]
  - SEROTONIN SYNDROME [None]
  - ASTHENIA [None]
